FAERS Safety Report 5336554-0 (Version None)
Quarter: 2007Q2

REPORT INFORMATION
  Report Type: 
  Country: None (occurrence: None)
  Receive Date: 20070529
  Receipt Date: 20070520
  Transmission Date: 20071010
  Serious: Yes (Other)
  Sender: FDA-Public Use
  Company Number: US-AMGEN-STX225848

PATIENT
  Sex: Female

DRUGS (2)
  1. ENBREL [Suspect]
     Indication: RHEUMATOID ARTHRITIS
     Route: 058
     Dates: start: 20061207
  2. METHOTREXATE [Concomitant]
     Route: 065
     Dates: start: 19970101

REACTIONS (6)
  - COLONIC POLYP [None]
  - GASTRITIS EROSIVE [None]
  - MACULAR DEGENERATION [None]
  - RASH [None]
  - RHEUMATOID ARTHRITIS [None]
  - SWELLING [None]
